FAERS Safety Report 21374860 (Version 1)
Quarter: 2022Q3

REPORT INFORMATION
  Report Type: Spontaneous
  Country: US (occurrence: US)
  Receive Date: 20220926
  Receipt Date: 20220926
  Transmission Date: 20221026
  Serious: No
  Sender: FDA-Public Use
  Company Number: US-ALLERGAN-2211499US

PATIENT
  Age: 80 Year
  Sex: Female
  Weight: 45.805 kg

DRUGS (3)
  1. LEXAPRO [Interacting]
     Active Substance: ESCITALOPRAM OXALATE
     Indication: Product used for unknown indication
     Dosage: UNK
  2. TYVASO [Interacting]
     Active Substance: TREPROSTINIL
     Indication: Pulmonary arterial hypertension
     Dosage: ACTUAL: UNK, QID; 18-72 ?G (3-12 BREATHS), FOUR TIMES A DAY
     Route: 055
     Dates: start: 20220314
  3. ESBRIET [Concomitant]
     Active Substance: PIRFENIDONE

REACTIONS (2)
  - Drug interaction [Unknown]
  - Fatigue [Unknown]

NARRATIVE: CASE EVENT DATE: 20220301
